FAERS Safety Report 4457923-7 (Version None)
Quarter: 2004Q3

REPORT INFORMATION
  Report Type: 
  Country: None (occurrence: None)
  Receive Date: 20040922
  Receipt Date: 20040909
  Transmission Date: 20050211
  Serious: Yes (Other)
  Sender: FDA-Public Use
  Company Number: A0431652A

PATIENT
  Age: 64 Year
  Sex: Female

DRUGS (7)
  1. TEMOVATE [Suspect]
     Indication: PSORIASIS
     Dosage: TOPICAL
     Route: 061
     Dates: start: 20031009, end: 20031012
  2. ATORVASTATIN CALCIUM [Concomitant]
  3. LANSOPRAZOLE [Concomitant]
  4. CONJUGATED ESTROGENS [Concomitant]
  5. ATENOLOL [Concomitant]
  6. DICLOFENAC SODIUM [Concomitant]
  7. DOXEPIN HCL [Concomitant]

REACTIONS (7)
  - BURNING SENSATION [None]
  - CONDITION AGGRAVATED [None]
  - ERYTHEMA [None]
  - PRURITUS GENERALISED [None]
  - PSORIASIS [None]
  - SCRATCH [None]
  - SKIN BLEEDING [None]
